FAERS Safety Report 20959883 (Version 1)
Quarter: 2022Q2

REPORT INFORMATION
  Report Type: Report from Study
  Country: DE (occurrence: DE)
  Receive Date: 20220614
  Receipt Date: 20220614
  Transmission Date: 20220720
  Serious: Yes (Other)
  Sender: FDA-Public Use
  Company Number: DE-BRISTOL-MYERS SQUIBB COMPANY-2022-034579

PATIENT
  Age: 79 Year
  Sex: Male

DRUGS (5)
  1. REVLIMID [Suspect]
     Active Substance: LENALIDOMIDE
     Indication: Plasma cell myeloma
     Dates: start: 20190318, end: 20190602
  2. REVLIMID [Suspect]
     Active Substance: LENALIDOMIDE
     Dates: start: 20191128, end: 20200312
  3. REVLIMID [Suspect]
     Active Substance: LENALIDOMIDE
     Dates: start: 20200403, end: 20200423
  4. REVLIMID [Suspect]
     Active Substance: LENALIDOMIDE
     Dates: start: 20200430, end: 20201231
  5. REVLIMID [Suspect]
     Active Substance: LENALIDOMIDE
     Dates: start: 20210108, end: 20210225

REACTIONS (1)
  - Neoplasm [Unknown]

NARRATIVE: CASE EVENT DATE: 20190603
